FAERS Safety Report 8269840-5 (Version None)
Quarter: 2012Q2

REPORT INFORMATION
  Report Type: 
  Country: None (occurrence: None)
  Receive Date: 20120410
  Receipt Date: 20120326
  Transmission Date: 20120825
  Serious: Yes (Other)
  Sender: FDA-Public Use
  Company Number: US-JNJFOC-20110803166

PATIENT
  Sex: Male

DRUGS (8)
  1. NASONEX [Suspect]
     Indication: SINUSITIS
     Route: 045
  2. LEVAQUIN [Suspect]
     Indication: OROPHARYNGEAL PAIN
     Route: 048
     Dates: start: 20080101, end: 20090101
  3. DEPO-MEDROL [Suspect]
     Indication: SINUSITIS
     Route: 065
  4. FENOFIBRATE [Concomitant]
     Indication: BLOOD TRIGLYCERIDES
     Route: 065
     Dates: start: 20060101, end: 20110101
  5. WARFARIN SODIUM [Concomitant]
     Indication: THROMBOSIS
     Route: 065
     Dates: start: 20080101, end: 20110101
  6. LEVAQUIN [Suspect]
     Indication: SINUSITIS
     Route: 048
     Dates: start: 20080101, end: 20090101
  7. PREDNISONE TAB [Suspect]
     Indication: SINUSITIS
     Dosage: TAPERING DOSE
     Route: 065
  8. LOVASTATIN [Concomitant]
     Indication: BLOOD CHOLESTEROL DECREASED
     Route: 065
     Dates: start: 20040101, end: 20110101

REACTIONS (2)
  - ROTATOR CUFF SYNDROME [None]
  - TENDON RUPTURE [None]
